FAERS Safety Report 5827826-1 (Version None)
Quarter: 2008Q3

REPORT INFORMATION
  Report Type: 
  Country: None (occurrence: None)
  Receive Date: 20080728
  Receipt Date: 20080718
  Transmission Date: 20090109
  Serious: Yes (Hospitalization)
  Sender: FDA-Public Use
  Company Number: WAES 0806USA07734

PATIENT
  Age: 31 Year
  Sex: Female
  Weight: 46.7205 kg

DRUGS (11)
  1. ZOCOR [Suspect]
     Indication: PULMONARY ARTERIAL HYPERTENSION
     Dosage: 240 MG/UNK/PO
     Route: 048
     Dates: start: 20080531, end: 20080606
  2. ASPIRIN [Suspect]
     Indication: PULMONARY ARTERIAL HYPERTENSION
     Dosage: 1539 MG/UNK/UNK
     Dates: start: 20080531, end: 20080619
  3. ALDACTONE [Concomitant]
  4. COUMADIN [Concomitant]
  5. LASIX [Concomitant]
  6. REVATIO [Concomitant]
  7. VENTAVIS [Concomitant]
  8. AMBRISENTAN [Concomitant]
  9. DIGOXIN [Concomitant]
  10. DILTIAZEM HYDROCHLORIDE [Concomitant]
  11. VALACYCLOVIR HYDROCHLORIDE [Concomitant]

REACTIONS (22)
  - ACTIVATED PARTIAL THROMBOPLASTIN TIME PROLONGED [None]
  - ANAEMIA [None]
  - BLOOD PRESSURE DECREASED [None]
  - BUNDLE BRANCH BLOCK RIGHT [None]
  - CELLULITIS [None]
  - CHEST PAIN [None]
  - DIZZINESS [None]
  - DRUG SCREEN POSITIVE [None]
  - DYSPNOEA [None]
  - FEELING HOT [None]
  - HYPERHIDROSIS [None]
  - HYPONATRAEMIA [None]
  - INCORRECT DOSE ADMINISTERED [None]
  - INTERNATIONAL NORMALISED RATIO INCREASED [None]
  - OXYGEN SATURATION DECREASED [None]
  - PAIN IN EXTREMITY [None]
  - PALPITATIONS [None]
  - PARAESTHESIA [None]
  - PRESYNCOPE [None]
  - PROTHROMBIN TIME PROLONGED [None]
  - VENTRICULAR HYPERTROPHY [None]
  - VENTRICULAR TACHYCARDIA [None]
